FAERS Safety Report 8927100 (Version 1)
Quarter: 2012Q4

REPORT INFORMATION
  Report Type: 
  Country: US (occurrence: US)
  Receive Date: 20121127
  Receipt Date: 20121127
  Transmission Date: 20130627
  Serious: Yes (Other)
  Sender: FDA-Public Use
  Company Number: US-MYLANLABS-2012S1017627

PATIENT
  Age: 58 Year
  Sex: Male

DRUGS (4)
  1. MONTELUKAST SODIUM [Suspect]
     Indication: MULTIPLE ALLERGIES
     Route: 048
     Dates: start: 201208, end: 20120828
  2. MONTELUKAST SODIUM [Suspect]
     Indication: ASTHMA
     Route: 048
     Dates: start: 201208, end: 20120828
  3. SYNTHROID [Concomitant]
     Indication: THYROID HORMONE REPLACEMENT THERAPY
     Route: 048
  4. LISINOPRIL [Concomitant]
     Indication: BLOOD PRESSURE
     Route: 048

REACTIONS (6)
  - Drug ineffective [Recovered/Resolved]
  - Asthma [Recovered/Resolved]
  - Lacrimation increased [Recovered/Resolved]
  - Rhinorrhoea [Recovered/Resolved]
  - Product substitution issue [None]
  - Product quality issue [None]
